FAERS Safety Report 25140354 (Version 2)
Quarter: 2025Q2

REPORT INFORMATION
  Report Type: Spontaneous
  Country: US (occurrence: US)
  Receive Date: 20250331
  Receipt Date: 20250410
  Transmission Date: 20250717
  Serious: Yes (Life-Threatening, Hospitalization)
  Sender: TEVA
  Company Number: US-TEVA-VS-3314584

PATIENT
  Age: 67 Year
  Sex: Male

DRUGS (2)
  1. SOTALOL [Suspect]
     Active Substance: SOTALOL
     Indication: Ventricular tachycardia
     Route: 065
  2. METOPROLOL [Suspect]
     Active Substance: METOPROLOL
     Indication: Ventricular tachycardia
     Route: 065

REACTIONS (1)
  - Drug ineffective [Unknown]
